FAERS Safety Report 6145466-4 (Version None)
Quarter: 2009Q2

REPORT INFORMATION
  Report Type: 
  Country: None (occurrence: None)
  Receive Date: 20090402
  Receipt Date: 20090320
  Transmission Date: 20091009
  Serious: Yes (Other)
  Sender: FDA-Public Use
  Company Number: B0567304A

PATIENT
  Age: 10 Year
  Sex: Male

DRUGS (6)
  1. MELPHALAN (FORMULATION UNKNOWN) (GENERIC) (MELPHALAN) [Suspect]
  2. FLUDARABINE PHOSPHATE [Suspect]
  3. IMMUNOTHERAPY (FORMULATION UNKNOWN) (IMMUNOTHERAPY) [Suspect]
  4. IMMUNE GLOBULIN INTRAVENOUS (HUMAN) [Suspect]
  5. CYCLOSPORINE [Concomitant]
  6. MYCOPHENOLATE MOFETIL [Concomitant]

REACTIONS (2)
  - DRUG TOXICITY [None]
  - EPSTEIN-BARR VIRUS INFECTION [None]
